FAERS Safety Report 21996079 (Version 14)
Quarter: 2024Q1

REPORT INFORMATION
  Report Type: Report from Study
  Country: US (occurrence: US)
  Receive Date: 20230215
  Receipt Date: 20240105
  Transmission Date: 20240410
  Serious: Yes (Other)
  Sender: FDA-Public Use
  Company Number: US-002147023-NVSC2023US034223

PATIENT
  Sex: Female

DRUGS (1)
  1. KESIMPTA [Suspect]
     Active Substance: OFATUMUMAB
     Indication: Product used for unknown indication
     Dosage: UNK
     Route: 065

REACTIONS (11)
  - Neuropathy peripheral [Unknown]
  - Night sweats [Unknown]
  - Paraesthesia [Unknown]
  - Asthenia [Unknown]
  - Hypoaesthesia [Unknown]
  - Haemangioma of bone [Unknown]
  - Joint injury [Unknown]
  - Blood testosterone decreased [Unknown]
  - Chills [Unknown]
  - Fatigue [Unknown]
  - Therapeutic response shortened [Unknown]
